FAERS Safety Report 22399337 (Version 2)
Quarter: 2023Q2

REPORT INFORMATION
  Report Type: Spontaneous
  Country: CN (occurrence: CN)
  Receive Date: 20230602
  Receipt Date: 20230614
  Transmission Date: 20230722
  Serious: Yes (Other)
  Sender: FDA-Public Use
  Company Number: CN-SUN PHARMACEUTICAL INDUSTRIES LTD-2023R1-389951

PATIENT
  Age: 47 Year
  Sex: Male

DRUGS (4)
  1. HYDROCHLOROTHIAZIDE\IRBESARTAN [Suspect]
     Active Substance: HYDROCHLOROTHIAZIDE\IRBESARTAN
     Indication: Hypertension
     Dosage: 1 TABLET, QD
     Route: 048
  2. LITHIUM [Interacting]
     Active Substance: LITHIUM
     Indication: Mania
     Dosage: 0.3 GRAM, QD
     Route: 048
  3. LITHIUM [Interacting]
     Active Substance: LITHIUM
     Dosage: 0.9 GRAM, QD
     Route: 048
  4. OLANZAPINE [Concomitant]
     Active Substance: OLANZAPINE
     Indication: Bipolar disorder
     Dosage: 10 MILLIGRAM, QD
     Route: 048

REACTIONS (2)
  - Toxicity to various agents [Unknown]
  - Drug interaction [Unknown]
